FAERS Safety Report 15110570 (Version 1)
Quarter: 2018Q3

REPORT INFORMATION
  Report Type: Spontaneous
  Country: GB (occurrence: GB)
  Receive Date: 20180705
  Receipt Date: 20180705
  Transmission Date: 20181010
  Serious: Yes (Other)
  Sender: FDA-Public Use
  Company Number: GB-PFIZER INC-2018267720

PATIENT
  Age: 38 Year
  Sex: Female
  Weight: 67.58 kg

DRUGS (2)
  1. PREGABALIN. [Suspect]
     Active Substance: PREGABALIN
     Indication: ANXIETY
     Dosage: 150 MG, UNK
     Route: 048
     Dates: start: 20180524
  2. REBOXETINE [Concomitant]
     Active Substance: REBOXETINE
     Dosage: UNK

REACTIONS (2)
  - Mood swings [Unknown]
  - Anger [Not Recovered/Not Resolved]
